FAERS Safety Report 4672935-6 (Version None)
Quarter: 2005Q2

REPORT INFORMATION
  Report Type: 
  Country: None (occurrence: None)
  Receive Date: 20050523
  Receipt Date: 20050509
  Transmission Date: 20051028
  Serious: Yes (Death, Hospitalization)
  Sender: FDA-Public Use
  Company Number: 0500061EN0020P

PATIENT
  Age: 2 Year
  Sex: Female
  Weight: 11 kg

DRUGS (12)
  1. ONCASPAR [Suspect]
     Indication: ACUTE LYMPHOCYTIC LEUKAEMIA
     Dosage: 1225 IU IM
     Route: 030
     Dates: start: 20011231, end: 20011231
  2. VINCRISTINE [Suspect]
     Indication: ACUTE LYMPHOCYTIC LEUKAEMIA
     Dosage: 0.7 MG Q7DAY
     Dates: start: 20011228, end: 20020111
  3. DEXAMETHASONE [Suspect]
     Indication: ACUTE LYMPHOCYTIC LEUKAEMIA
     Dosage: 5 MG QD FOR 7 DAYS
     Dates: start: 20011228, end: 20020103
  4. DEXAMETHASONE [Suspect]
     Indication: ACUTE LYMPHOCYTIC LEUKAEMIA
     Dosage: 5 MG QD FOR 7 DAYS
     Dates: start: 20020111, end: 20020117
  5. CYTARABINE [Suspect]
     Indication: ACUTE LYMPHOCYTIC LEUKAEMIA
     Dosage: 37 MG IV QD FOR 4 DAYS
     Route: 042
     Dates: start: 20020206, end: 20020209
  6. CYTARABINE [Suspect]
     Indication: ACUTE LYMPHOCYTIC LEUKAEMIA
     Dosage: 37 MG IV QD FOR 4 DAYS
     Route: 042
     Dates: start: 20020213, end: 20020213
  7. METHOTREXATE [Suspect]
     Indication: ACUTE LYMPHOCYTIC LEUKAEMIA
     Dosage: 8 MG IT Q7DAYS; 10 MG IT Q7DAYS
     Route: 038
     Dates: start: 20011228, end: 20011228
  8. METHOTREXATE [Suspect]
     Indication: ACUTE LYMPHOCYTIC LEUKAEMIA
     Dosage: 8 MG IT Q7DAYS; 10 MG IT Q7DAYS
     Route: 038
     Dates: start: 20020207, end: 20020207
  9. DOXORUBICIN [Suspect]
     Indication: ACUTE LYMPHOCYTIC LEUKAEMIA
     Dosage: 12 MG IV Q7DAYS
     Route: 042
     Dates: start: 20011228, end: 20020111
  10. CYCLOPHOSPHAMIDE [Suspect]
     Indication: ACUTE LYMPHOCYTIC LEUKAEMIA
     Dosage: 490 MG IV QD
     Route: 042
     Dates: start: 20011228, end: 20020111
  11. THIOGUANINE [Suspect]
     Indication: ACUTE LYMPHOCYTIC LEUKAEMIA
     Dosage: 40 MG PO QD; 20 MG PO QD FOR 4 DAYS
     Route: 048
     Dates: start: 20020206, end: 20020208
  12. THIOGUANINE [Suspect]
     Indication: ACUTE LYMPHOCYTIC LEUKAEMIA
     Dosage: 40 MG PO QD; 20 MG PO QD FOR 4 DAYS
     Route: 048
     Dates: start: 20020209, end: 20020212

REACTIONS (9)
  - BLOOD CULTURE POSITIVE [None]
  - CANDIDIASIS [None]
  - HAEMOPHILUS INFECTION [None]
  - IMMUNOSUPPRESSION [None]
  - MULTI-ORGAN FAILURE [None]
  - PANCYTOPENIA [None]
  - PERITONEAL HAEMORRHAGE [None]
  - RESPIRATORY DISTRESS [None]
  - RESPIRATORY SYNCYTIAL VIRUS INFECTION [None]
